FAERS Safety Report 8861518 (Version 1)
Quarter: 2012Q4

REPORT INFORMATION
  Report Type: Spontaneous
  Country: US (occurrence: None)
  Receive Date: 20121023
  Receipt Date: 20121023
  Transmission Date: 20130627
  Serious: Yes (Hospitalization)
  Sender: FDA-Public Use
  Company Number: ADR-2012-01911

PATIENT
  Sex: Female

DRUGS (2)
  1. BACLOFEN [Suspect]
  2. BACLOFEN [Suspect]

REACTIONS (6)
  - Feeling abnormal [None]
  - Somnolence [None]
  - Micturition urgency [None]
  - Anuria [None]
  - Back pain [None]
  - Pain in extremity [None]
